FAERS Safety Report 5101982-5 (Version None)
Quarter: 2006Q3

REPORT INFORMATION
  Report Type: 
  Country: None (occurrence: None)
  Receive Date: 20060907
  Receipt Date: 20060822
  Transmission Date: 20061208
  Serious: Yes (Other)
  Sender: FDA-Public Use
  Company Number: 216704

PATIENT
  Age: 60 Year
  Sex: Female

DRUGS (10)
  1. RITUXIMAB OR CODE BROKEN [Suspect]
     Indication: RHEUMATOID ARTHRITIS
     Dosage: 1000 MG, DAYS 1 + 15, INTRAVENOUS
     Route: 042
     Dates: start: 20031229, end: 20031229
  2. METHYLPREDNISOLONE [Suspect]
     Indication: RHEUMATOID ARTHRITIS
     Dosage: 100 MG, INTRAVENOUS
     Route: 042
     Dates: start: 20031229
  3. ACETAMINOPHEN [Concomitant]
  4. DIPHENHYDRAMINE (DIPHENHYDRAMINE NOS) [Concomitant]
  5. PREDNISONE TAB [Concomitant]
  6. CALCIUM (CALCIUM NOS) [Concomitant]
  7. MULTIVITAMIN [Concomitant]
  8. VITAMIN E [Concomitant]
  9. FOLIC ACID [Concomitant]
  10. METHOTREXATE [Concomitant]

REACTIONS (10)
  - ASTHENIA [None]
  - BLOOD PRESSURE DECREASED [None]
  - CONVULSION [None]
  - DIZZINESS POSTURAL [None]
  - FAECAL INCONTINENCE [None]
  - INFUSION SITE REACTION [None]
  - SIMPLE PARTIAL SEIZURES [None]
  - SYNCOPE [None]
  - SYNCOPE VASOVAGAL [None]
  - WHITE BLOOD CELL COUNT INCREASED [None]
